FAERS Safety Report 13034213 (Version 1)
Quarter: 2016Q4

REPORT INFORMATION
  Report Type: Spontaneous
  Country: US (occurrence: US)
  Receive Date: 20161216
  Receipt Date: 20161216
  Transmission Date: 20170207
  Serious: Yes (Other)
  Sender: FDA-Public Use
  Company Number: US-SUN PHARMACEUTICAL INDUSTRIES LTD-2016US-129592

PATIENT
  Age: 57 Year
  Sex: Male

DRUGS (10)
  1. RISPERIDONE. [Suspect]
     Active Substance: RISPERIDONE
     Dosage: 3 MG, DAILY
     Route: 065
     Dates: start: 2009, end: 2011
  2. TEMOZOLOMIDE. [Concomitant]
     Active Substance: TEMOZOLOMIDE
     Indication: GLIOBLASTOMA
     Dosage: 150 KG/M2, FOR DAYS 1-5 FOR EVERY 28-DAY CYCLE
     Route: 065
     Dates: end: 201112
  3. TEMOZOLOMIDE. [Concomitant]
     Active Substance: TEMOZOLOMIDE
     Indication: GLIOBLASTOMA
     Dosage: 75 MG/M2,CYCLICAL(LOW-DOSE INTAKE EVERY DAY FOR 6 WEEKS WITH 2-WEEK GAPS IN BTW THE 6-WEEK CYCLES)
     Route: 065
  4. AVASTIN [Concomitant]
     Active Substance: BEVACIZUMAB
     Indication: GLIOBLASTOMA
     Dosage: UNK
     Route: 065
  5. RISPERIDONE. [Suspect]
     Active Substance: RISPERIDONE
     Dosage: QD (TOTAL DAILY DOSE OF 6 MG AND UP TO 6.5 MG AS NEEDED)
     Route: 065
     Dates: start: 2000, end: 2006
  6. TEMOZOLOMIDE. [Concomitant]
     Active Substance: TEMOZOLOMIDE
     Dosage: UNK
     Route: 065
     Dates: end: 20061005
  7. RISPERIDONE. [Suspect]
     Active Substance: RISPERIDONE
     Dosage: 4.5 MG, DAILY
     Route: 065
     Dates: start: 2006, end: 2008
  8. RISPERIDONE. [Suspect]
     Active Substance: RISPERIDONE
     Indication: SCHIZOPHRENIA
     Dosage: 4 MG, DAILY
     Route: 065
     Dates: start: 2008, end: 2009
  9. RISPERIDONE. [Suspect]
     Active Substance: RISPERIDONE
     Dosage: 2.5 MG, DAILY
     Route: 065
     Dates: start: 2011, end: 201109
  10. RISPERIDONE. [Suspect]
     Active Substance: RISPERIDONE
     Indication: SCHIZOPHRENIA
     Dosage: 2 MG, DAILY
     Route: 065
     Dates: start: 201109

REACTIONS (3)
  - Gait disturbance [Unknown]
  - Cognitive disorder [Unknown]
  - Overdose [Unknown]
